FAERS Safety Report 9012874 (Version 1)
Quarter: 2013Q1

REPORT INFORMATION
  Report Type: Spontaneous
  Country: US (occurrence: US)
  Receive Date: 20130114
  Receipt Date: 20130114
  Transmission Date: 20140127
  Serious: Yes (Other)
  Sender: FDA-Public Use
  Company Number: CHPA2013US000550

PATIENT
  Age: 84 Year
  Sex: Female

DRUGS (1)
  1. EXCEDRIN EXTRA STRENGTH [Suspect]
     Indication: SCIATICA
     Dosage: 2 DF, UNK
     Route: 048

REACTIONS (4)
  - Oral bacterial infection [Recovered/Resolved]
  - Sciatica [Not Recovered/Not Resolved]
  - Off label use [Unknown]
  - Expired drug administered [Unknown]
